FAERS Safety Report 10079090 (Version 2)
Quarter: 2014Q2

REPORT INFORMATION
  Report Type: Spontaneous
  Country: US (occurrence: US)
  Receive Date: 20140415
  Receipt Date: 20140415
  Transmission Date: 20141212
  Serious: Yes (Other)
  Sender: FDA-Public Use
  Company Number: US-ASTRAZENECA-2012SE15237

PATIENT
  Age: 59 Year
  Sex: Female
  Weight: 99.8 kg

DRUGS (12)
  1. TOPROL XL [Suspect]
     Indication: MIGRAINE
     Route: 048
     Dates: start: 2000
  2. TOPROL XL [Suspect]
     Indication: BLOOD PRESSURE ABNORMAL
     Route: 048
     Dates: start: 2000
  3. TOPROL XL [Suspect]
     Indication: MITRAL VALVE PROLAPSE
     Route: 048
     Dates: start: 2000
  4. NEXIUM [Suspect]
     Indication: HIATUS HERNIA
     Route: 048
     Dates: start: 2009
  5. CRESTOR [Suspect]
     Indication: BLOOD CHOLESTEROL INCREASED
     Route: 048
     Dates: end: 20140101
  6. NABUMETONE [Concomitant]
     Indication: ARTHRITIS
     Dates: start: 201312
  7. NITROFURANTOIN [Concomitant]
     Indication: KIDNEY INFECTION
     Dates: start: 2013
  8. ZETIA [Concomitant]
     Indication: BLOOD CHOLESTEROL ABNORMAL
     Dates: start: 2013
  9. UROCIT [Concomitant]
     Indication: NEPHROLITHIASIS
     Dates: start: 20140313
  10. MELATONIN [Concomitant]
     Indication: SLEEP DISORDER THERAPY
     Dates: start: 201401
  11. ASPIRIN [Concomitant]
     Indication: ISCHAEMIC HEART DISEASE PROPHYLAXIS
     Dates: start: 2000
  12. ASPIRIN [Concomitant]
     Indication: BLOOD CHOLESTEROL ABNORMAL
     Dates: start: 2000

REACTIONS (12)
  - Nephrolithiasis [Unknown]
  - Myalgia [Recovering/Resolving]
  - Osteoarthritis [Unknown]
  - Liver disorder [Unknown]
  - Hiatus hernia [Unknown]
  - Mitral valve prolapse [Unknown]
  - Kidney infection [Unknown]
  - Visual acuity reduced [Unknown]
  - Off label use [Unknown]
  - Intentional product misuse [Unknown]
  - Wrong patient received medication [Unknown]
  - Drug dose omission [Unknown]
